FAERS Safety Report 5481236-8 (Version None)
Quarter: 2007Q4

REPORT INFORMATION
  Report Type: 
  Country: None (occurrence: None)
  Receive Date: 20071010
  Receipt Date: 20071001
  Transmission Date: 20080405
  Serious: Yes (Other)
  Sender: FDA-Public Use
  Company Number: GB-JNJFOC-20071000591

PATIENT
  Sex: Female
  Weight: 58 kg

DRUGS (10)
  1. REMICADE [Suspect]
     Indication: RHEUMATOID ARTHRITIS
     Route: 042
  2. METHOTREXATE [Concomitant]
  3. CALCI-CHEW [Concomitant]
  4. CO-CODAMOL [Concomitant]
  5. DOCUSATE SODIUM [Concomitant]
  6. ESOMEPRAZOLE MAGNESIUM [Concomitant]
  7. FERROUS SULFATE TAB [Concomitant]
  8. FOLIC ACID [Concomitant]
  9. FOSAMAX [Concomitant]
  10. RAMIPRIL [Concomitant]

REACTIONS (1)
  - BASAL CELL CARCINOMA [None]
